FAERS Safety Report 16622553 (Version 2)
Quarter: 2019Q3

REPORT INFORMATION
  Report Type: Spontaneous
  Country: FR (occurrence: FR)
  Receive Date: 20190724
  Receipt Date: 20190801
  Transmission Date: 20191004
  Serious: Yes (Other)
  Sender: FDA-Public Use
  Company Number: FR-BEH-2019104557

PATIENT
  Age: 25 Year
  Sex: Female
  Weight: 66 kg

DRUGS (2)
  1. RHOPHYLAC [Suspect]
     Active Substance: HUMAN RHO(D) IMMUNE GLOBULIN
     Indication: ALLOIMMUNISATION
     Dosage: 300 MICROGRAM
     Route: 042
     Dates: start: 20190625, end: 20190625
  2. RHOPHYLAC [Suspect]
     Active Substance: HUMAN RHO(D) IMMUNE GLOBULIN
     Indication: ALLOIMMUNISATION
     Dosage: 300 MICROGRAM
     Route: 042
     Dates: start: 20190625, end: 20190625

REACTIONS (5)
  - Skin lesion [Unknown]
  - Joint injury [Unknown]
  - Limb injury [Unknown]
  - Haemolysis [Unknown]
  - Yellow skin [Unknown]

NARRATIVE: CASE EVENT DATE: 20190625
